FAERS Safety Report 4688118-X (Version None)
Quarter: 2005Q2

REPORT INFORMATION
  Report Type: 
  Country: None (occurrence: None)
  Receive Date: 20050609
  Receipt Date: 20050526
  Transmission Date: 20051028
  Serious: Yes (Hospitalization)
  Sender: FDA-Public Use
  Company Number: 2005080969

PATIENT
  Age: 82 Year
  Sex: Female
  Weight: 73.4827 kg

DRUGS (1)
  1. BEXTRA [Suspect]
     Indication: ILL-DEFINED DISORDER
     Dosage: ORAL
     Route: 048

REACTIONS (3)
  - RECTAL HAEMORRHAGE [None]
  - SYNCOPE [None]
  - VOMITING [None]
